FAERS Safety Report 6942025-8 (Version None)
Quarter: 2010Q3

REPORT INFORMATION
  Report Type: 
  Country: None (occurrence: None)
  Receive Date: 20100803
  Receipt Date: 20100719
  Transmission Date: 20110219
  Serious: Yes (Hospitalization)
  Sender: FDA-Public Use
  Company Number: OMX-2010-00058

PATIENT
  Age: 74 Year
  Sex: Female
  Weight: 94.8018 kg

DRUGS (2)
  1. EVICEL [Suspect]
     Indication: HAEMOSTASIS
     Dates: start: 20100630
  2. PRESSURE REGULATOR [Concomitant]

REACTIONS (1)
  - SEPSIS [None]
